FAERS Safety Report 6264199-7 (Version None)
Quarter: 2009Q3

REPORT INFORMATION
  Report Type: 
  Country: None (occurrence: None)
  Receive Date: 20090710
  Receipt Date: 20090629
  Transmission Date: 20100115
  Serious: Yes (Death, Other)
  Sender: FDA-Public Use
  Company Number: US-PFIZER INC-2009233719

PATIENT
  Sex: Female

DRUGS (3)
  1. GEODON [Suspect]
     Indication: SCHIZOPHRENIA
     Dosage: 240 MG, UNK
  2. SEROQUEL [Suspect]
     Dosage: 1200 MG, UNK
  3. EFFEXOR [Concomitant]
     Dosage: 300 MG, UNK

REACTIONS (3)
  - DEATH [None]
  - DRUG LEVEL INCREASED [None]
  - HEPATIC STEATOSIS [None]
